FAERS Safety Report 7085461-4 (Version None)
Quarter: 2010Q4

REPORT INFORMATION
  Report Type: 
  Country: None (occurrence: None)
  Receive Date: 20101105
  Receipt Date: 20101102
  Transmission Date: 20110411
  Serious: Yes (Hospitalization)
  Sender: FDA-Public Use
  Company Number: GB-BAYER-201044308GPV

PATIENT
  Age: 64 Year
  Sex: Male

DRUGS (4)
  1. ASPIRIN [Suspect]
     Indication: BARRETT'S OESOPHAGUS
     Dosage: TOTAL DAILY DOSE: 300 MG
     Route: 048
     Dates: start: 20050927, end: 20100920
  2. ESOMEPRAZOLE MAGNESIUM [Suspect]
     Indication: BARRETT'S OESOPHAGUS
     Route: 048
     Dates: start: 20050927
  3. ESOMEPRAZOLE MAGNESIUM [Suspect]
     Route: 048
     Dates: end: 20100920
  4. PROPRANOLOL [Suspect]
     Indication: PRODUCT USED FOR UNKNOWN INDICATION

REACTIONS (2)
  - CIRCULATORY COLLAPSE [None]
  - HYPOTENSION [None]
